FAERS Safety Report 9765233 (Version 2)
Quarter: 2014Q4

REPORT INFORMATION
  Report Type: Spontaneous
  Country: US (occurrence: US)
  Receive Date: 20131217
  Receipt Date: 20141217
  Transmission Date: 20150529
  Serious: No
  Sender: FDA-Public Use
  Company Number: US-GLAXOSMITHKLINE-A1002975A

PATIENT

DRUGS (8)
  1. VOTRIENT [Suspect]
     Active Substance: PAZOPANIB HYDROCHLORIDE
     Dates: start: 201210
  2. PROCHLORPERAZINE. [Concomitant]
     Active Substance: PROCHLORPERAZINE
  3. VOTRIENT [Suspect]
     Active Substance: PAZOPANIB HYDROCHLORIDE
     Indication: MALIGNANT URINARY TRACT NEOPLASM
     Dosage: 800 MG (4 X 200 MG TABLETS)200 MG TABLETS AT UNKNOWN DOSING
     Route: 048
     Dates: start: 201210
  4. VOTRIENT [Suspect]
     Active Substance: PAZOPANIB HYDROCHLORIDE
     Indication: RENAL CANCER
     Dates: start: 201210
  5. RADIATION [Concomitant]
     Active Substance: RADIATION THERAPY
  6. LISINOPRIL. [Concomitant]
     Active Substance: LISINOPRIL
  7. CLINICAL STUDY MEDICATION [Concomitant]
     Indication: PROPHYLAXIS
     Route: 042
  8. IMODIUM [Concomitant]
     Active Substance: LOPERAMIDE HYDROCHLORIDE

REACTIONS (7)
  - Diarrhoea [Not Recovered/Not Resolved]
  - Blood pressure increased [Unknown]
  - Hepatic enzyme increased [Unknown]
  - Drug intolerance [Unknown]
  - Nausea [Unknown]
  - Drug administration error [Unknown]
  - Hypertension [Unknown]
